FAERS Safety Report 8256337-1 (Version None)
Quarter: 2012Q1

REPORT INFORMATION
  Report Type: 
  Country: None (occurrence: None)
  Receive Date: 20120330
  Receipt Date: 20120319
  Transmission Date: 20120608
  Serious: Yes (Congenital Anomaly, Other)
  Sender: FDA-Public Use
  Company Number: 09-AUR-09800

PATIENT
  Age: 12 Week
  Sex: Male

DRUGS (7)
  1. CODEINE PHOSPHATE (CODEINE PHOSPHATE) (CODEINE) [Suspect]
     Indication: PRODUCT USED FOR UNKNOWN INDICATION
     Dosage: 30MG (30 MG,AS NECESSARY),TRANSPLACENTAL
     Route: 064
  2. FERROUS SULFATE TAB [Suspect]
     Indication: PRODUCT USED FOR UNKNOWN INDICATION
     Dosage: 400 MG (200 MG,2 IN 1 D),TRANSPLACENTAL
     Route: 064
     Dates: start: 20081006
  3. REBOXETINE (REBOXETINE) [Suspect]
     Indication: BIPOLAR DISORDER
     Dosage: 4MG (4 MG),TRANSPLACENTAL
     Route: 064
     Dates: start: 20050101, end: 20080529
  4. AMOXICILLIN [Suspect]
     Indication: PRODUCT USED FOR UNKNOWN INDICATION
     Dosage: 750 MG (750 MG,3 IN 1 D),TRANSPLACENTAL
     Route: 064
     Dates: start: 20080707, end: 20080714
  5. LITHIUM CARBONATE [Suspect]
     Indication: BIPOLAR DISORDER
     Dosage: 1200MG (1200 MG),TRANSPLACENTAL
     Route: 064
     Dates: start: 20060101
  6. QUETIAPINE FUMARATE [Suspect]
     Indication: BIPOLAR DISORDER
     Dosage: 100MG,TRANSPLACENTAL
     Route: 064
     Dates: start: 20080421, end: 20080616
  7. EFFEXOR [Suspect]
     Indication: BIPOLAR DISORDER
     Dosage: 150MG (150 MG),TRANSPLACENTAL
     Route: 064
     Dates: start: 20050624

REACTIONS (2)
  - PIERRE ROBIN SYNDROME [None]
  - MATERNAL DRUGS AFFECTING FOETUS [None]
